FAERS Safety Report 5641955-7 (Version None)
Quarter: 2008Q1

REPORT INFORMATION
  Report Type: 
  Country: None (occurrence: None)
  Receive Date: 20080131
  Receipt Date: 20071018
  Transmission Date: 20080703
  Serious: No
  Sender: FDA-Public Use
  Company Number: 163-21880-07101005

PATIENT
  Age: 73 Year
  Sex: Male

DRUGS (3)
  1. REVLIMID [Suspect]
     Indication: MULTIPLE MYELOMA
     Dosage: 10 MG, 1 IN I D, ORAL
     Route: 048
     Dates: start: 20071003
  2. DEXAMETHASONE TAB [Concomitant]
  3. BLOOD PRESSURE MED (ANTIHYPERTENSIVES) [Concomitant]

REACTIONS (1)
  - JOINT SWELLING [None]
